FAERS Safety Report 13616782 (Version 2)
Quarter: 2019Q2

REPORT INFORMATION
  Report Type: Spontaneous
  Country: US (occurrence: US)
  Receive Date: 20170606
  Receipt Date: 20190527
  Transmission Date: 20190711
  Serious: No
  Sender: FDA-Public Use
  Company Number: US-SA-2016SA159230

PATIENT
  Age: 56 Year
  Sex: Female

DRUGS (2)
  1. LANTUS SOLOSTAR [Suspect]
     Active Substance: INSULIN GLARGINE
     Dosage: 17 DF,QD
     Route: 065
     Dates: start: 201511
  2. LANTUS SOLOSTAR [Suspect]
     Active Substance: INSULIN GLARGINE
     Indication: TYPE 2 DIABETES MELLITUS
     Dosage: 17 DF,QD
     Route: 065
     Dates: start: 201511

REACTIONS (7)
  - Dizziness [Unknown]
  - Presyncope [Unknown]
  - Flushing [Unknown]
  - Nausea [Unknown]
  - Device issue [Unknown]
  - Product use issue [Unknown]
  - Overweight [Unknown]

NARRATIVE: CASE EVENT DATE: 2016
